FAERS Safety Report 6415528-2 (Version None)
Quarter: 2009Q4

REPORT INFORMATION
  Report Type: 
  Country: None (occurrence: None)
  Receive Date: 20091022
  Receipt Date: 20091014
  Transmission Date: 20100525
  Serious: Yes (Hospitalization)
  Sender: FDA-Public Use
  Company Number: 2009AL006583

PATIENT
  Sex: Female

DRUGS (3)
  1. PHENYTOIN [Suspect]
     Indication: GRAND MAL CONVULSION
     Dosage: 600 MG; QD; UNK
  2. CLONAZEPAM [Suspect]
     Indication: GRAND MAL CONVULSION
     Dosage: 1 MG; QD; UNK
  3. VALPROATE SODIUM [Concomitant]

REACTIONS (15)
  - AMYOTROPHIC LATERAL SCLEROSIS [None]
  - ASPIRATION [None]
  - ASTHENIA [None]
  - BULBAR PALSY [None]
  - DIPLOPIA [None]
  - DYSARTHRIA [None]
  - DYSPHAGIA [None]
  - GAIT DISTURBANCE [None]
  - HEPATIC STEATOSIS [None]
  - HYPERREFLEXIA [None]
  - HYPOALBUMINAEMIA [None]
  - MOTOR NEURONE DISEASE [None]
  - MUSCLE CONTRACTIONS INVOLUNTARY [None]
  - SEPSIS [None]
  - WEIGHT DECREASED [None]
